FAERS Safety Report 9552550 (Version 1)
Quarter: 2013Q3

REPORT INFORMATION
  Report Type: Spontaneous
  Country: US (occurrence: None)
  Receive Date: 20130924
  Receipt Date: 20130924
  Transmission Date: 20140515
  Serious: No
  Sender: FDA-Public Use
  Company Number: None

PATIENT
  Age: 90 Year
  Sex: Female
  Weight: 78.02 kg

DRUGS (1)
  1. RAPAFLO [Suspect]
     Indication: URINARY RETENTION
     Dosage: BY MOUTH
     Route: 048

REACTIONS (4)
  - Swelling [None]
  - Rash [None]
  - Pruritus [None]
  - Perineal induration [None]
